FAERS Safety Report 9365296 (Version 1)
Quarter: 2013Q2

REPORT INFORMATION
  Report Type: Report from Study
  Country: US (occurrence: US)
  Receive Date: 20130625
  Receipt Date: 20130625
  Transmission Date: 20140414
  Serious: Yes (Hospitalization, Other)
  Sender: FDA-Public Use
  Company Number: US-ROCHE-1239622

PATIENT
  Sex: Female

DRUGS (3)
  1. XELODA [Suspect]
     Indication: GLIOBLASTOMA MULTIFORME
     Dosage: WEEKS ON AND 2 WEEKS OFF FREQUENCY
     Route: 065
  2. AVASTIN [Suspect]
     Indication: GLIOBLASTOMA MULTIFORME
     Dosage: DISCONTINUED IN MAR/2013-APR/2013
     Route: 065
  3. TEMODAR [Suspect]
     Indication: GLIOBLASTOMA MULTIFORME
     Route: 065

REACTIONS (8)
  - Fall [Unknown]
  - Upper limb fracture [Recovering/Resolving]
  - Brain neoplasm malignant [Unknown]
  - Fatigue [Not Recovered/Not Resolved]
  - Diarrhoea [Unknown]
  - Fatigue [Unknown]
  - Nervousness [Unknown]
  - Vasoconstriction [Unknown]
